FAERS Safety Report 7591633-2 (Version None)
Quarter: 2011Q3

REPORT INFORMATION
  Report Type: 
  Country: None (occurrence: None)
  Receive Date: 20110706
  Receipt Date: 20110621
  Transmission Date: 20111222
  Serious: Yes (Other)
  Sender: FDA-Public Use
  Company Number: US-BAYER-201033787NA

PATIENT
  Age: 18 Year
  Sex: Female
  Weight: 77 kg

DRUGS (3)
  1. YASMIN [Suspect]
     Indication: DYSMENORRHOEA
  2. YASMIN [Suspect]
     Indication: ORAL CONTRACEPTION
  3. YASMIN [Suspect]
     Indication: MENSTRUAL CYCLE MANAGEMENT
     Route: 048
     Dates: start: 20040801, end: 20050701

REACTIONS (3)
  - PAIN [None]
  - FUNCTIONAL GASTROINTESTINAL DISORDER [None]
  - CHOLELITHIASIS [None]
